FAERS Safety Report 20759172 (Version 1)
Quarter: 2022Q2

REPORT INFORMATION
  Report Type: Spontaneous
  Country: US (occurrence: US)
  Receive Date: 20220427
  Receipt Date: 20220427
  Transmission Date: 20220720
  Serious: No
  Sender: FDA-Public Use
  Company Number: US-BioHaven Pharmaceuticals-2022BHV000007

PATIENT
  Age: 19 Year
  Sex: Female
  Weight: 47.216 kg

DRUGS (1)
  1. NURTEC ODT [Suspect]
     Active Substance: RIMEGEPANT SULFATE
     Indication: Migraine
     Dosage: PATIENT TOOK 5 DOSES TOTAL; PATIENT ONLY GOT 1 FILL ON 13-DEC-2021.
     Route: 060
     Dates: start: 20211214, end: 20211227

REACTIONS (2)
  - Drug ineffective [Recovered/Resolved]
  - Nausea [Unknown]

NARRATIVE: CASE EVENT DATE: 20211201
